FAERS Safety Report 4983352-3 (Version None)
Quarter: 2006Q2

REPORT INFORMATION
  Report Type: 
  Country: None (occurrence: None)
  Receive Date: 20060426
  Receipt Date: 20050831
  Transmission Date: 20061013
  Serious: Yes (Hospitalization, Disabling)
  Sender: FDA-Public Use
  Company Number: US-MERCK-0509USA00209

PATIENT
  Age: 44 Year
  Sex: Female
  Weight: 76 kg

DRUGS (7)
  1. VIOXX [Suspect]
     Indication: NECK PAIN
     Route: 048
     Dates: start: 20010601, end: 20011001
  2. HYDROCODONE HYDROCHLORIDE [Concomitant]
     Route: 065
  3. PSEUDOEPHEDRINE [Concomitant]
     Route: 065
  4. PHENTOLAMINE HYDROCHLORIDE [Concomitant]
     Route: 065
  5. PREVACID [Concomitant]
     Route: 065
  6. DIAZEPAM [Concomitant]
     Route: 065
  7. CEFADROXIL [Concomitant]
     Route: 065

REACTIONS (11)
  - ANXIETY [None]
  - CEREBROVASCULAR ACCIDENT [None]
  - CERVICAL MYELOPATHY [None]
  - DEPRESSION [None]
  - EMOTIONAL DISTRESS [None]
  - FEAR [None]
  - MYOCARDIAL INFARCTION [None]
  - NECK INJURY [None]
  - OVERDOSE [None]
  - PARTIAL SEIZURES [None]
  - VERTEBROBASILAR INSUFFICIENCY [None]
